FAERS Safety Report 19251262 (Version 1)
Quarter: 2021Q2

REPORT INFORMATION
  Report Type: Spontaneous
  Country: US (occurrence: US)
  Receive Date: 20210513
  Receipt Date: 20210513
  Transmission Date: 20210717
  Serious: Yes (Hospitalization)
  Sender: FDA-Public Use
  Company Number: US-SUN PHARMACEUTICAL INDUSTRIES LTD-2021R1-295116

PATIENT
  Sex: Female
  Weight: 59.86 kg

DRUGS (1)
  1. EPOPROSTENOL. [Suspect]
     Active Substance: EPOPROSTENOL
     Indication: PULMONARY ARTERIAL HYPERTENSION
     Dosage: 17 NG/KG/MIN
     Route: 042
     Dates: start: 20210325

REACTIONS (3)
  - Acute respiratory failure [Unknown]
  - Fatigue [Unknown]
  - Dyspnoea [Unknown]
